FAERS Safety Report 7082139-8 (Version None)
Quarter: 2010Q4

REPORT INFORMATION
  Report Type: 
  Country: None (occurrence: None)
  Receive Date: 20101103
  Receipt Date: 20101028
  Transmission Date: 20110411
  Serious: Yes (Hospitalization)
  Sender: FDA-Public Use
  Company Number: US-ABBOTT-10P-163-0682389-00

PATIENT
  Age: 64 Year
  Sex: Female

DRUGS (18)
  1. HUMIRA [Suspect]
     Indication: RHEUMATOID ARTHRITIS
     Route: 058
     Dates: start: 20090819
  2. ZETIA [Concomitant]
     Indication: PRODUCT USED FOR UNKNOWN INDICATION
     Route: 048
  3. HYDROCHLOTHIAZIDE [Concomitant]
     Indication: PRODUCT USED FOR UNKNOWN INDICATION
     Route: 048
  4. AMBIEN [Concomitant]
     Indication: PRODUCT USED FOR UNKNOWN INDICATION
     Dosage: AT HOUR OF SLEEP
     Route: 048
  5. CYMBALTA [Concomitant]
     Indication: PRODUCT USED FOR UNKNOWN INDICATION
     Route: 048
  6. LYRICA [Concomitant]
     Indication: PRODUCT USED FOR UNKNOWN INDICATION
     Route: 048
  7. SYNTHROID [Concomitant]
     Indication: PRODUCT USED FOR UNKNOWN INDICATION
     Route: 048
  8. ALLEGRA [Concomitant]
     Indication: PRODUCT USED FOR UNKNOWN INDICATION
     Route: 048
  9. ULTRAM [Concomitant]
     Indication: PAIN
     Route: 048
  10. VICODIN [Concomitant]
     Indication: PAIN
     Dosage: 5-500MG
  11. TYLENOL EXTRA STRENGTH [Concomitant]
     Indication: PAIN
  12. MULTI-VITAMIN [Concomitant]
     Indication: PRODUCT USED FOR UNKNOWN INDICATION
  13. VITAMIN B [Concomitant]
     Indication: PRODUCT USED FOR UNKNOWN INDICATION
  14. ASCORBIC ACID [Concomitant]
     Indication: PRODUCT USED FOR UNKNOWN INDICATION
     Route: 048
  15. VITAMIN D3 [Concomitant]
     Indication: PRODUCT USED FOR UNKNOWN INDICATION
     Route: 048
  16. OMEPRAZOLE [Concomitant]
     Indication: PRODUCT USED FOR UNKNOWN INDICATION
  17. TRICOR [Concomitant]
     Indication: PRODUCT USED FOR UNKNOWN INDICATION
  18. LISINOPRIL [Concomitant]
     Indication: PRODUCT USED FOR UNKNOWN INDICATION

REACTIONS (10)
  - BLOOD THYROID STIMULATING HORMONE DECREASED [None]
  - BLOOD UREA INCREASED [None]
  - DEHYDRATION [None]
  - FALL [None]
  - MULTI-ORGAN FAILURE [None]
  - MUSCLE SPASMS [None]
  - RENAL FAILURE [None]
  - SEPSIS [None]
  - THYROXINE FREE INCREASED [None]
  - URINARY TRACT INFECTION [None]
